FAERS Safety Report 9934219 (Version 1)
Quarter: 2014Q1

REPORT INFORMATION
  Report Type: Spontaneous
  Country: PK (occurrence: PK)
  Receive Date: 20140228
  Receipt Date: 20140228
  Transmission Date: 20141002
  Serious: Yes (Death)
  Sender: FDA-Public Use
  Company Number: PHHY2014PK024317

PATIENT
  Sex: 0

DRUGS (2)
  1. IMATINIB [Suspect]
     Dosage: UNK
     Route: 064
  2. IMATINIB [Suspect]
     Dosage: UNK
     Route: 064

REACTIONS (2)
  - Death [Fatal]
  - Foetal exposure during pregnancy [Unknown]
